FAERS Safety Report 10297327 (Version 2)
Quarter: 2014Q3

REPORT INFORMATION
  Report Type: Spontaneous
  Country: US (occurrence: US)
  Receive Date: 20140711
  Receipt Date: 20140827
  Transmission Date: 20150326
  Serious: Yes (Hospitalization)
  Sender: FDA-Public Use
  Company Number: US-BAYER-2014-102774

PATIENT
  Age: 24 Year
  Sex: Female
  Weight: 86.62 kg

DRUGS (6)
  1. LORATADINE. [Concomitant]
     Active Substance: LORATADINE
     Dosage: 10 MG, UNK
  2. ALBUTEROL. [Concomitant]
     Active Substance: ALBUTEROL
     Indication: ASTHMA
     Dosage: 90 MCG/24HR, UNK
     Dates: start: 2009, end: 2013
  3. MIRENA [Suspect]
     Active Substance: LEVONORGESTREL
     Indication: CONTRACEPTION
     Dosage: 20 MCG/24HR, CONT
     Route: 015
     Dates: start: 20100113, end: 20120827
  4. PROAIR HFA [Concomitant]
     Active Substance: ALBUTEROL SULFATE
     Indication: ASTHMA
     Dosage: UNK
     Dates: start: 2009, end: 2013
  5. AMOXICILLIN. [Concomitant]
     Active Substance: AMOXICILLIN
     Dosage: 500 MG, UNK
  6. PRENATAL VITAMINS [Concomitant]
     Active Substance: VITAMINS

REACTIONS (7)
  - Pain [None]
  - Mental disorder [None]
  - Injury [None]
  - Emotional distress [None]
  - Uterine perforation [None]
  - Off label use [None]
  - Device dislocation [None]

NARRATIVE: CASE EVENT DATE: 201208
